FAERS Safety Report 16066571 (Version 1)
Quarter: 2019Q1

REPORT INFORMATION
  Report Type: Spontaneous
  Country: CH (occurrence: CH)
  Receive Date: 20190313
  Receipt Date: 20190313
  Transmission Date: 20190418
  Serious: Yes (Life-Threatening, Hospitalization)
  Sender: FDA-Public Use
  Company Number: CH-ASTRAZENECA-2019SE40465

PATIENT
  Age: 60 Year
  Sex: Female

DRUGS (2)
  1. ABILIFY [Suspect]
     Active Substance: ARIPIPRAZOLE
     Indication: BIPOLAR DISORDER
     Dosage: 5.0MG UNKNOWN
     Route: 048
     Dates: end: 20190211
  2. XIGDUO XR [Suspect]
     Active Substance: DAPAGLIFLOZIN PROPANEDIOL\METFORMIN HYDROCHLORIDE
     Indication: DIABETES MELLITUS
     Dosage: DOSE : 5 MG ET 1000 MG, 2 COMPRIM???S 1X/JOUR
     Route: 048
     Dates: end: 20190211

REACTIONS (1)
  - Diabetic ketoacidotic hyperglycaemic coma [Recovered/Resolved]

NARRATIVE: CASE EVENT DATE: 20190211
